FAERS Safety Report 6960364-1 (Version None)
Quarter: 2010Q3

REPORT INFORMATION
  Report Type: 
  Country: None (occurrence: None)
  Receive Date: 20100823
  Receipt Date: 20100628
  Transmission Date: 20110219
  Serious: No
  Sender: FDA-Public Use
  Company Number: 014771

PATIENT
  Sex: Female
  Weight: 76.8 kg

DRUGS (3)
  1. CIMZIA [Suspect]
     Indication: CROHN'S DISEASE
     Dosage: 400 MG 1X/MONTH SUBCUTANEOUS
     Route: 058
     Dates: start: 20091101
  2. ENTOCORT EC [Concomitant]
  3. VITAMIN TAB [Concomitant]

REACTIONS (4)
  - CROHN'S DISEASE [None]
  - GLOSSODYNIA [None]
  - ORAL PAIN [None]
  - OROPHARYNGEAL PAIN [None]
